FAERS Safety Report 7691014-7 (Version None)
Quarter: 2011Q3

REPORT INFORMATION
  Report Type: 
  Country: None (occurrence: None)
  Receive Date: 20110818
  Receipt Date: 20110816
  Transmission Date: 20111222
  Serious: Yes (Other)
  Sender: FDA-Public Use
  Company Number: CH-ROCHE-794912

PATIENT
  Sex: Female
  Weight: 60 kg

DRUGS (1)
  1. CELLCEPT [Suspect]
     Dosage: FREQUENCY : 2-3/D
     Route: 048
     Dates: start: 20071001, end: 20090401

REACTIONS (1)
  - BREATH ODOUR [None]
